FAERS Safety Report 5410286-2 (Version None)
Quarter: 2007Q3

REPORT INFORMATION
  Report Type: 
  Country: None (occurrence: None)
  Receive Date: 20070808
  Receipt Date: 20070726
  Transmission Date: 20080115
  Serious: Yes (Hospitalization)
  Sender: FDA-Public Use
  Company Number: VNL_00699_2007

PATIENT
  Sex: Female

DRUGS (1)
  1. APOKYN [Suspect]
     Indication: DRUG USE FOR UNKNOWN INDICATION
     Dosage: DF SUBCUTANEOUS
     Route: 058
     Dates: start: 20060101

REACTIONS (2)
  - FALL [None]
  - JOINT INJURY [None]
